FAERS Safety Report 10203775 (Version 1)
Quarter: 2014Q2

REPORT INFORMATION
  Report Type: Spontaneous
  Country: US (occurrence: US)
  Receive Date: 20140529
  Receipt Date: 20140529
  Transmission Date: 20141212
  Serious: Yes (Other)
  Sender: FDA-Public Use
  Company Number: US-ELI_LILLY_AND_COMPANY-US201405006380

PATIENT
  Age: 70 Year
  Sex: Male

DRUGS (1)
  1. HUMALOG LISPRO [Suspect]
     Indication: PRODUCT USED FOR UNKNOWN INDICATION
     Route: 065

REACTIONS (4)
  - Cerebrovascular accident [Unknown]
  - Muscular weakness [Unknown]
  - Blood glucose increased [Unknown]
  - Incorrect dosage administered [Unknown]
